FAERS Safety Report 24252051 (Version 1)
Quarter: 2024Q3

REPORT INFORMATION
  Report Type: Spontaneous
  Country: AU (occurrence: AU)
  Receive Date: 20240827
  Receipt Date: 20240827
  Transmission Date: 20241017
  Serious: Yes (Death, Hospitalization, Other)
  Sender: GLAXOSMITHKLINE
  Company Number: AU-GSK-AU2024APC105352

PATIENT

DRUGS (10)
  1. ABACAVIR [Suspect]
     Active Substance: ABACAVIR
     Indication: HIV infection
     Dosage: UNK
  2. LAMIVUDINE [Suspect]
     Active Substance: LAMIVUDINE
     Indication: HIV infection
     Dosage: UNK
  3. COBICISTAT\DARUNAVIR ETHANOLATE [Suspect]
     Active Substance: COBICISTAT\DARUNAVIR ETHANOLATE
     Indication: HIV infection
     Dosage: UNK
  4. SYMTUZA [Suspect]
     Active Substance: COBICISTAT\DARUNAVIR\EMTRICITABINE\TENOFOVIR ALAFENAMIDE
     Indication: HIV infection
     Dosage: UNK
  5. AMPHETAMINE [Suspect]
     Active Substance: AMPHETAMINE
     Indication: Attention deficit hyperactivity disorder
     Dosage: UNK
  6. METHAMPHETAMINE [Suspect]
     Active Substance: METHAMPHETAMINE
     Indication: Product used for unknown indication
     Dosage: UNK
  7. ASPIRIN [Suspect]
     Active Substance: ASPIRIN
     Indication: Coronary ostial stenosis
     Dosage: UNK
  8. HEPARIN [Suspect]
     Active Substance: HEPARIN SODIUM
     Indication: Acute myocardial infarction
     Dosage: UNK
     Route: 042
  9. TIROFIBAN [Suspect]
     Active Substance: TIROFIBAN
     Indication: Acute myocardial infarction
     Dosage: UNK
  10. TICAGRELOR [Suspect]
     Active Substance: TICAGRELOR
     Indication: Acute myocardial infarction

REACTIONS (12)
  - Death [Fatal]
  - Chest pain [Unknown]
  - Shock [Unknown]
  - Coronary artery occlusion [Unknown]
  - Coronary ostial stenosis [Unknown]
  - Coronary artery stenosis [Unknown]
  - Multiple organ dysfunction syndrome [Unknown]
  - Acute myocardial infarction [Unknown]
  - Fatigue [Unknown]
  - Dyspnoea exertional [Unknown]
  - Gastrooesophageal reflux disease [Unknown]
  - Attention deficit hyperactivity disorder [Unknown]
